FAERS Safety Report 16997186 (Version 1)
Quarter: 2019Q4

REPORT INFORMATION
  Report Type: Spontaneous
  Country: US (occurrence: US)
  Receive Date: 20191105
  Receipt Date: 20191105
  Transmission Date: 20200122
  Serious: No
  Sender: FDA-Public Use
  Company Number: US-RADIUS HEALTH INC.-2019US003030

PATIENT
  Sex: Female

DRUGS (1)
  1. TYMLOS [Suspect]
     Active Substance: ABALOPARATIDE
     Indication: OSTEOPOROSIS POSTMENOPAUSAL
     Dosage: 80 MCG, DAILY
     Route: 058
     Dates: start: 20190812

REACTIONS (6)
  - Fatigue [Unknown]
  - Injection site bruising [Not Recovered/Not Resolved]
  - Somnolence [Unknown]
  - Injection site discolouration [Unknown]
  - Fear of injection [Unknown]
  - Product use issue [Not Recovered/Not Resolved]
